FAERS Safety Report 10465892 (Version 3)
Quarter: 2024Q3

REPORT INFORMATION
  Report Type: Spontaneous
  Country: US (occurrence: US)
  Receive Date: 20140922
  Receipt Date: 20240709
  Transmission Date: 20241016
  Serious: Yes (Hospitalization, Other)
  Sender: AUROBINDO
  Company Number: US-AUROBINDO-AUR-APL-2014-09851

PATIENT
  Age: 31 Year
  Sex: Female

DRUGS (6)
  1. CIPROFLOXACIN [Suspect]
     Active Substance: CIPROFLOXACIN
     Indication: Product used for unknown indication
     Dosage: 500 MILLIGRAM
     Route: 048
  2. TRAZODONE [Suspect]
     Active Substance: TRAZODONE HYDROCHLORIDE
     Indication: Product used for unknown indication
     Dosage: 200 MILLIGRAM,AT BED TIME
     Route: 048
  3. FUROSEMIDE [Suspect]
     Active Substance: FUROSEMIDE
     Indication: Diuretic therapy
     Dosage: 40 MILLIGRAM, ONCE A DAY
     Route: 042
  4. HALOPERIDOL DECANOATE [Suspect]
     Active Substance: HALOPERIDOL DECANOATE
     Indication: Agitation
     Dosage: 200 MILLIGRAM
     Route: 030
  5. HALOPERIDOL DECANOATE [Suspect]
     Active Substance: HALOPERIDOL DECANOATE
     Dosage: 2 MILLIGRAM,EVERY 6 HOURS AS NEEDED
     Route: 042
  6. ZIPRASIDONE HYDROCHLORIDE [Suspect]
     Active Substance: ZIPRASIDONE HYDROCHLORIDE
     Indication: Agitation
     Dosage: 80 MILLIGRAM, TWO TIMES A DAY
     Route: 048

REACTIONS (12)
  - Cardiac failure congestive [Unknown]
  - Respiratory acidosis [Unknown]
  - Pulmonary hypertension [Unknown]
  - Sinus tachycardia [Recovered/Resolved]
  - Torsade de pointes [Recovered/Resolved]
  - Electrocardiogram QT prolonged [Recovered/Resolved]
  - Dyspnoea [Unknown]
  - Hepatomegaly [Unknown]
  - Agitation [Unknown]
  - Mental status changes [Unknown]
  - Hypomagnesaemia [Recovered/Resolved]
  - Off label use [Recovered/Resolved]
